FAERS Safety Report 14119967 (Version 1)
Quarter: 2017Q4

REPORT INFORMATION
  Report Type: Not Available
  Country: US (occurrence: US)
  Receive Date: 20171024
  Receipt Date: 20171024
  Transmission Date: 20180321
  Serious: No
  Sender: FDA-Public Use
  Company Number: US-NEUROCRINE BIOSCIENCES INC.-2017NBI00988

PATIENT
  Age: 23 Year
  Sex: Female

DRUGS (22)
  1. KEPPRA [Concomitant]
     Active Substance: LEVETIRACETAM
  2. INGREZZA [Suspect]
     Active Substance: VALBENAZINE
     Indication: TARDIVE DYSKINESIA
     Route: 048
     Dates: start: 20170718
  3. ALLEGRA [Concomitant]
     Active Substance: FEXOFENADINE HYDROCHLORIDE
     Indication: HYPERSENSITIVITY
  4. ATIVAN [Concomitant]
     Active Substance: LORAZEPAM
     Indication: ANXIETY
  5. VITAMIN B12 [Concomitant]
     Active Substance: CYANOCOBALAMIN
     Indication: VITAMIN B12 DEFICIENCY
  6. FLURBIPROFEN. [Concomitant]
     Active Substance: FLURBIPROFEN
     Indication: MIGRAINE
  7. VRAYLAR [Concomitant]
     Active Substance: CARIPRAZINE
     Indication: SCHIZOAFFECTIVE DISORDER
  8. DULERA [Concomitant]
     Active Substance: FORMOTEROL FUMARATE DIHYDRATE\MOMETASONE FUROATE
     Indication: ASTHMA
     Dosage: 2 PUFFS TWICE DAILY
  9. EPIPEN [Concomitant]
     Active Substance: EPINEPHRINE
     Indication: ANAPHYLACTIC REACTION
  10. KEPPRA [Concomitant]
     Active Substance: LEVETIRACETAM
     Indication: TARDIVE DYSKINESIA
     Dates: end: 2017
  11. LAMICTAL [Concomitant]
     Active Substance: LAMOTRIGINE
     Indication: SCHIZOAFFECTIVE DISORDER
  12. N-ACETYLCYSTEINE [Concomitant]
     Active Substance: ACETYLCYSTEINE
  13. PROPRANOLOL XR [Concomitant]
     Indication: AKATHISIA
  14. RELPAX [Concomitant]
     Active Substance: ELETRIPTAN HYDROBROMIDE
     Indication: MIGRAINE
  15. LAVENDER OIL [Concomitant]
     Active Substance: LAVENDER OIL
     Indication: ANXIETY
  16. ALBUTEROL. [Concomitant]
     Active Substance: ALBUTEROL
     Indication: ASTHMA
     Dosage: RESCUE INHALER
  17. FISH OIL [Concomitant]
     Active Substance: FISH OIL
  18. METFORMIN [Concomitant]
     Active Substance: METFORMIN HYDROCHLORIDE
     Indication: POLYCYSTIC OVARIES
  19. WOMEN^S 1-A-DAY DAILY MULTIVITAMIN [Concomitant]
  20. NAMENDA XR [Concomitant]
     Active Substance: MEMANTINE HYDROCHLORIDE
     Indication: OBSESSIVE-COMPULSIVE DISORDER
  21. VITAMIN B6 [Concomitant]
     Active Substance: PYRIDOXINE HYDROCHLORIDE
     Indication: AKATHISIA
  22. MAGNESIUM OXIDE. [Concomitant]
     Active Substance: MAGNESIUM OXIDE

REACTIONS (1)
  - Somnolence [Recovering/Resolving]

NARRATIVE: CASE EVENT DATE: 20170719
